FAERS Safety Report 7810049-4 (Version None)
Quarter: 2011Q4

REPORT INFORMATION
  Report Type: 
  Country: None (occurrence: None)
  Receive Date: 20111012
  Receipt Date: 20110825
  Transmission Date: 20120403
  Serious: No
  Sender: FDA-Public Use
  Company Number: US-GLAXOSMITHKLINE-A0942295A

PATIENT
  Age: 83 Year
  Sex: Male

DRUGS (10)
  1. JALYN [Suspect]
     Indication: DYSURIA
     Dosage: .5MG PER DAY
     Route: 048
     Dates: start: 20110101
  2. FUROSEMIDE [Concomitant]
  3. CARVEDILOL [Concomitant]
  4. FLUTICASONE PROPIONATE [Concomitant]
  5. SELENIUM [Concomitant]
  6. MULTI-VITAMIN [Concomitant]
  7. LISINOPRIL [Concomitant]
  8. VIAGRA [Concomitant]
  9. ASPIRIN [Concomitant]
  10. SIMVASTATIN [Concomitant]

REACTIONS (2)
  - PRODUCT QUALITY ISSUE [None]
  - NOCTURIA [None]
